FAERS Safety Report 6585135-X (Version None)
Quarter: 2010Q1

REPORT INFORMATION
  Report Type: 
  Country: None (occurrence: None)
  Receive Date: 20100217
  Receipt Date: 20100208
  Transmission Date: 20100710
  Serious: Yes (Hospitalization, Other)
  Sender: FDA-Public Use
  Company Number: SG-ROCHE-684275

PATIENT
  Age: 27 Year
  Sex: Female

DRUGS (8)
  1. MYCOPHENOLATE MOFETIL [Suspect]
     Indication: LUPUS NEPHRITIS
     Route: 065
  2. MYCOPHENOLATE MOFETIL [Suspect]
     Route: 065
     Dates: start: 20080101
  3. MYCOPHENOLATE MOFETIL [Suspect]
     Dosage: DOSAGE TAPERED.
     Route: 065
  4. PREDNISOLONE [Suspect]
     Indication: LUPUS NEPHRITIS
     Route: 065
  5. PREDNISOLONE [Suspect]
     Dosage: DOSE ESCALATED. HIGH-DOSE.
     Route: 065
     Dates: start: 20070101
  6. PREDNISOLONE [Suspect]
     Dosage: TAPERED DOWN.
     Route: 065
  7. CYCLOPHOSPHAMIDE [Suspect]
     Indication: VASCULITIS
     Route: 065
  8. CYCLOPHOSPHAMIDE [Suspect]
     Route: 065
     Dates: start: 20080301

REACTIONS (3)
  - NEUTROPENIA [None]
  - VASCULITIS [None]
  - WOUND INFECTION [None]
